FAERS Safety Report 8176806-2 (Version None)
Quarter: 2012Q1

REPORT INFORMATION
  Report Type: 
  Country: None (occurrence: None)
  Receive Date: 20120228
  Receipt Date: 20120215
  Transmission Date: 20120608
  Serious: Yes (Other)
  Sender: FDA-Public Use
  Company Number: DSJ-2012-00479

PATIENT
  Age: 45 Year
  Sex: Male
  Weight: 79.1 kg

DRUGS (2)
  1. LIVALO [Concomitant]
  2. OLMESARTAN MEDOXOMIL [Suspect]
     Indication: HYPERTENSION
     Dosage: 20 MG (20 MG, 1 IN 1 D),PER ORAL
     Route: 048
     Dates: start: 20120107, end: 20120109

REACTIONS (4)
  - LOSS OF CONSCIOUSNESS [None]
  - BLOOD PRESSURE INCREASED [None]
  - ALCOHOL USE [None]
  - FALL [None]
